FAERS Safety Report 9969875 (Version 1)
Quarter: 2014Q1

REPORT INFORMATION
  Report Type: Spontaneous
  Country: US (occurrence: US)
  Receive Date: 20140306
  Receipt Date: 20140306
  Transmission Date: 20141002
  Serious: Yes (Other)
  Sender: FDA-Public Use
  Company Number: US-JNJFOC-20140218246

PATIENT
  Age: 60 Year
  Sex: Male

DRUGS (6)
  1. XARELTO [Suspect]
     Indication: DEEP VEIN THROMBOSIS
     Route: 048
     Dates: start: 201402, end: 201402
  2. COUMADIN [Suspect]
     Indication: DEEP VEIN THROMBOSIS
     Route: 065
  3. PRAVASTATIN [Concomitant]
     Route: 065
  4. LASIX [Concomitant]
     Route: 065
  5. METOPROLOL [Concomitant]
     Route: 065
  6. LOSARTAN [Concomitant]
     Route: 065

REACTIONS (5)
  - Mouth haemorrhage [Recovered/Resolved]
  - Gingival bleeding [Recovered/Resolved]
  - Haematuria [Recovered/Resolved]
  - Nephrolithiasis [Unknown]
  - International normalised ratio increased [Unknown]
